FAERS Safety Report 7208347-0 (Version None)
Quarter: 2010Q4

REPORT INFORMATION
  Report Type: 
  Country: None (occurrence: None)
  Receive Date: 20101230
  Receipt Date: 20101230
  Transmission Date: 20110411
  Serious: Yes (Life-Threatening, Other)
  Sender: FDA-Public Use
  Company Number: None

PATIENT
  Sex: Female
  Weight: 58.9676 kg

DRUGS (2)
  1. DARVOCET [Suspect]
     Indication: MULTIPLE SCLEROSIS
     Dosage: 100-650 TID PO
     Route: 048
     Dates: end: 20101128
  2. DARVOCET [Suspect]
     Indication: PAIN
     Dosage: 100-650 TID PO
     Route: 048
     Dates: end: 20101128

REACTIONS (5)
  - FALL [None]
  - FOREARM FRACTURE [None]
  - HEAD INJURY [None]
  - VERTIGO [None]
  - WRIST FRACTURE [None]
